FAERS Safety Report 6699213-8 (Version None)
Quarter: 2010Q2

REPORT INFORMATION
  Report Type: 
  Country: None (occurrence: None)
  Receive Date: 20100427
  Receipt Date: 20100415
  Transmission Date: 20101027
  Serious: Yes (Hospitalization)
  Sender: FDA-Public Use
  Company Number: DE-GILEAD-E2B_00000573

PATIENT
  Sex: Female
  Weight: 77 kg

DRUGS (6)
  1. AMBRISENTAN [Suspect]
     Indication: VENOOCCLUSIVE DISEASE
     Dosage: 5MG PER DAY
     Route: 048
     Dates: start: 20090623, end: 20090630
  2. REVATIO [Suspect]
     Indication: PULMONARY ARTERIAL HYPERTENSION
     Route: 048
     Dates: start: 20090101, end: 20090101
  3. ILOPROST [Concomitant]
     Indication: PULMONARY ARTERIAL HYPERTENSION
     Route: 065
  4. LEVOTHYROXINE SODIUM [Concomitant]
     Route: 048
  5. TORSEMIDE [Concomitant]
     Route: 065
  6. PENTAERYTHRITOL TETRANITRATE [Concomitant]
     Route: 065

REACTIONS (3)
  - HYPOXIA [None]
  - PLEURAL EFFUSION [None]
  - RESPIRATORY DISORDER [None]
